FAERS Safety Report 17245482 (Version 1)
Quarter: 2020Q1

REPORT INFORMATION
  Report Type: Spontaneous
  Country: IN (occurrence: IN)
  Receive Date: 20200108
  Receipt Date: 20200108
  Transmission Date: 20200409
  Serious: Yes (Death)
  Sender: FDA-Public Use
  Company Number: IN-ROCHE-2517271

PATIENT
  Age: 23 Year
  Sex: Male
  Weight: 42.5 kg

DRUGS (22)
  1. FEBUXOSTAT. [Concomitant]
     Active Substance: FEBUXOSTAT
     Indication: HYPERURICAEMIA
     Route: 048
     Dates: start: 20191208, end: 20191229
  2. PREDNISOLONE. [Suspect]
     Active Substance: PREDNISOLONE
     Indication: DIFFUSE LARGE B-CELL LYMPHOMA
     Dosage: TOTAL DURATION OF TREATMENT: 16 DAYS, TOTAL NUMBER OF DOSE ADMINISTERED: 5 DOSE
     Route: 048
     Dates: start: 20191207, end: 20191211
  3. PANTOPRAZOLE [Concomitant]
     Active Substance: PANTOPRAZOLE
     Route: 042
     Dates: start: 20191207, end: 20191229
  4. DOXORUBICIN HYDROCHLORIDE. [Suspect]
     Active Substance: DOXORUBICIN HYDROCHLORIDE
     Indication: DIFFUSE LARGE B-CELL LYMPHOMA
     Dosage: DAILY DOSE: 68 MG, TOT
     Route: 042
     Dates: start: 20191210, end: 20191210
  5. METRONIDAZOLE. [Concomitant]
     Active Substance: METRONIDAZOLE
     Indication: BACTERIAL INFECTION
     Route: 042
     Dates: start: 20191218, end: 20191221
  6. PERINORM [Concomitant]
     Route: 042
     Dates: start: 20191218, end: 20191222
  7. MUCAINE [ALUMINIUM HYDROXIDE;MAGNESIUM HYDROXIDE;OXETACAINE] [Concomitant]
     Route: 048
     Dates: start: 20191208, end: 20191229
  8. VIT K1 [Concomitant]
     Active Substance: PHYTONADIONE
     Route: 042
     Dates: start: 20191222, end: 20191224
  9. RACECADOTRIL [Concomitant]
     Active Substance: RACECADOTRIL
     Indication: DIARRHOEA
     Route: 042
     Dates: start: 20191217, end: 20191221
  10. PCM [Concomitant]
     Indication: PYREXIA
     Route: 042
     Dates: start: 20191218, end: 20191224
  11. CYCLOPHOSPHAMIDE. [Suspect]
     Active Substance: CYCLOPHOSPHAMIDE
     Indication: DIFFUSE LARGE B-CELL LYMPHOMA
     Dosage: DAILY DOSE: 1024 MG, TOTAL DURATION OF TREATMENT: 13 DAYS, TOTAL NUMBER OF DOSE?ADMINISTERED: 1 CYCL
     Route: 042
     Dates: start: 20191210, end: 20191210
  12. CEFTRIAXONE. [Concomitant]
     Active Substance: CEFTRIAXONE
     Indication: BACTERIAL INFECTION
     Route: 042
     Dates: start: 20191212, end: 20191217
  13. PIPERACILLIN. [Concomitant]
     Active Substance: PIPERACILLIN SODIUM
     Indication: BACTERIAL INFECTION
     Route: 042
     Dates: start: 20191218, end: 20191229
  14. CALCIUM GLUCONATE. [Concomitant]
     Active Substance: CALCIUM GLUCONATE
     Route: 042
     Dates: start: 20191218, end: 20191218
  15. PEGFILGRASTIM [Concomitant]
     Active Substance: PEGFILGRASTIM
     Route: 058
     Dates: start: 20191219, end: 20191221
  16. POTASSIUM;SODIUM CHLORIDE [Concomitant]
     Dosage: 3 AMPOULE, DOSE REGIMEN- STAT
     Route: 065
     Dates: start: 20191226, end: 20191227
  17. LINEZOLID. [Concomitant]
     Active Substance: LINEZOLID
     Indication: BACTERIAL INFECTION
     Route: 048
     Dates: start: 20191227, end: 20191229
  18. VINCRISTINE [Suspect]
     Active Substance: VINCRISTINE
     Indication: DIFFUSE LARGE B-CELL LYMPHOMA
     Dosage: DAILY DOSE: 2.0 MG, TOTAL DURATION OF TREATMENT: 13 DAYS, TOTAL NUMBER OF DOSE?ADMINISTERED: 1 CYCLE
     Route: 042
     Dates: start: 20191210, end: 20191210
  19. TORSEMIDE. [Concomitant]
     Active Substance: TORSEMIDE
     Indication: OEDEMA PERIPHERAL
     Route: 042
     Dates: start: 20191211, end: 20191229
  20. RANITIDINE. [Concomitant]
     Active Substance: RANITIDINE
     Route: 048
     Dates: start: 20191210, end: 20191213
  21. SODAMINT [MENTHA X PIPERITA OIL;SODIUM BICARBONATE] [Concomitant]
     Route: 048
     Dates: start: 20191208, end: 20191226
  22. RITUXIMAB. [Suspect]
     Active Substance: RITUXIMAB
     Indication: DIFFUSE LARGE B-CELL LYMPHOMA
     Dosage: DOSAGE STRENGTH- 100MG, TOTAL DURATION OF TREATMENT: 16 DAYS, TOTAL NUMBER OF DOSE?ADMINISTERED: 1 C
     Route: 041
     Dates: start: 20191207, end: 20191207

REACTIONS (2)
  - Acute kidney injury [Fatal]
  - Tumour lysis syndrome [Fatal]

NARRATIVE: CASE EVENT DATE: 20191223
